FAERS Safety Report 7045772-5 (Version None)
Quarter: 2010Q4

REPORT INFORMATION
  Report Type: 
  Country: None (occurrence: None)
  Receive Date: 20101014
  Receipt Date: 20101006
  Transmission Date: 20110411
  Serious: Yes (Death, Life-Threatening, Hospitalization, Disabling)
  Sender: FDA-Public Use
  Company Number: US-BAXTER-2010BH023328

PATIENT
  Age: 87 Year
  Sex: Female
  Weight: 66 kg

DRUGS (4)
  1. DIANEAL [Suspect]
     Indication: PERITONEAL DIALYSIS
     Route: 033
     Dates: end: 20100101
  2. DIANEAL [Suspect]
     Route: 033
     Dates: end: 20100101
  3. DIANEAL [Suspect]
     Indication: PERITONEAL DIALYSIS
     Route: 033
     Dates: end: 20100101
  4. DIANEAL [Suspect]
     Route: 033
     Dates: end: 20100101

REACTIONS (1)
  - GASTROINTESTINAL HAEMORRHAGE [None]
